FAERS Safety Report 6612773-8 (Version None)
Quarter: 2010Q1

REPORT INFORMATION
  Report Type: 
  Country: None (occurrence: None)
  Receive Date: 20100223
  Receipt Date: 20100212
  Transmission Date: 20100710
  Serious: Yes (Death)
  Sender: FDA-Public Use
  Company Number: 2010-0586

PATIENT
  Age: 73 Year
  Sex: Male

DRUGS (5)
  1. APOMORPHINE     (APOKYN) (APOMORPHINE HYDROCHLORIDE) [Suspect]
     Indication: PARKINSON'S DISEASE
     Dosage: 2 MG, 1 IN 6 HR
  2. SELEGELINE (SELEGELINE) [Concomitant]
  3. PERGOLIDE MESYLATE [Concomitant]
  4. LEVODOPA (LEVODOPA) [Concomitant]
  5. DOMPERIDONE (DOMPERIDONE) [Concomitant]

REACTIONS (1)
  - DEATH [None]
